FAERS Safety Report 7329336-1 (Version None)
Quarter: 2011Q1

REPORT INFORMATION
  Report Type: 
  Country: None (occurrence: None)
  Receive Date: 20110303
  Receipt Date: 20110222
  Transmission Date: 20110831
  Serious: Yes (Hospitalization, Disabling)
  Sender: FDA-Public Use
  Company Number: US-MERCK-1006USA03993

PATIENT
  Age: 63 Year
  Sex: Female

DRUGS (2)
  1. ALENDRONATE SODIUM [Suspect]
     Route: 048
     Dates: start: 20080316
  2. FOSAMAX [Suspect]
     Indication: OSTEOPENIA
     Route: 048
     Dates: start: 20050101, end: 20100119

REACTIONS (16)
  - MENISCUS LESION [None]
  - ANXIETY [None]
  - HYPERGLYCAEMIA [None]
  - NIGHT SWEATS [None]
  - DEPRESSION [None]
  - HAEMORRHOIDS [None]
  - GASTRITIS [None]
  - LIGAMENT RUPTURE [None]
  - FALL [None]
  - AMNESIA [None]
  - DENTAL CARIES [None]
  - DIVERTICULUM [None]
  - FEMUR FRACTURE [None]
  - OSTEOARTHRITIS [None]
  - PAIN IN EXTREMITY [None]
  - HIATUS HERNIA [None]
